FAERS Safety Report 19646292 (Version 3)
Quarter: 2021Q4

REPORT INFORMATION
  Report Type: Spontaneous
  Country: US (occurrence: US)
  Receive Date: 20210802
  Receipt Date: 20211228
  Transmission Date: 20220303
  Serious: Yes (Other)
  Sender: FDA-Public Use
  Company Number: US-SK LIFE SCIENCE, INC-SKPVG-2021-000852

PATIENT

DRUGS (7)
  1. XCOPRI [Suspect]
     Active Substance: CENOBAMATE
     Indication: Product used for unknown indication
     Dosage: 12.5 MILLIGRAM
     Route: 065
     Dates: start: 20210626, end: 20210709
  2. XCOPRI [Suspect]
     Active Substance: CENOBAMATE
     Dosage: 25 MILLIGRAM
     Route: 065
     Dates: start: 20210710, end: 20210723
  3. XCOPRI [Suspect]
     Active Substance: CENOBAMATE
     Dosage: 50 MILLIGRAM
     Route: 065
     Dates: start: 20210724, end: 20210806
  4. XCOPRI [Suspect]
     Active Substance: CENOBAMATE
     Dosage: 100 MILLIGRAM
     Route: 065
     Dates: start: 20210807, end: 20210818
  5. ASPIRIN [Concomitant]
     Active Substance: ASPIRIN
     Indication: Antiphospholipid syndrome
     Dosage: UNK
     Route: 065
     Dates: start: 19830405
  6. ASPIRIN [Concomitant]
     Active Substance: ASPIRIN
     Dosage: UNK, QD (ONE DAILY)
     Route: 065
     Dates: start: 20191017
  7. METOPROLOL [Concomitant]
     Active Substance: METOPROLOL
     Indication: Hypertension
     Dosage: UNK, QD, ONE IN THE MORNING.
     Route: 065
     Dates: start: 20210329

REACTIONS (11)
  - Hallucination [Recovered/Resolved]
  - Eczema [Recovered/Resolved]
  - Blister [Recovered/Resolved]
  - Hypoaesthesia [Recovered/Resolved]
  - Sleep terror [Recovered/Resolved]
  - Night sweats [Recovered/Resolved]
  - Acne [Recovered/Resolved]
  - Body temperature increased [Recovered/Resolved]
  - Pruritus [Recovered/Resolved]
  - Dry mouth [Recovered/Resolved]
  - Vertigo [Recovered/Resolved]

NARRATIVE: CASE EVENT DATE: 20210628
